FAERS Safety Report 17883620 (Version 2)
Quarter: 2020Q2

REPORT INFORMATION
  Report Type: Spontaneous
  Country: US (occurrence: US)
  Receive Date: 20200611
  Receipt Date: 20200616
  Transmission Date: 20200714
  Serious: Yes (Other)
  Sender: FDA-Public Use
  Company Number: US-BAUSCH-BL-2020-016354

PATIENT
  Age: 82 Year
  Sex: Male

DRUGS (7)
  1. WARFARIN [Concomitant]
     Active Substance: WARFARIN
     Indication: PRODUCT USED FOR UNKNOWN INDICATION
  2. DILTIAZEM. [Suspect]
     Active Substance: DILTIAZEM
     Indication: PRODUCT USED FOR UNKNOWN INDICATION
     Route: 065
  3. VITAMIN K [Concomitant]
     Active Substance: PHYTONADIONE
     Indication: PROCOAGULANT THERAPY
  4. LEVETIRACETAM. [Concomitant]
     Active Substance: LEVETIRACETAM
     Indication: SUBDURAL HAEMATOMA
     Route: 065
  5. LACOSAMIDE. [Interacting]
     Active Substance: LACOSAMIDE
     Indication: PARTIAL SEIZURES
     Dosage: LOADING DOSE
     Route: 042
  6. METOPROLOL. [Interacting]
     Active Substance: METOPROLOL
     Indication: PRODUCT USED FOR UNKNOWN INDICATION
     Route: 065
  7. LORAZEPAM. [Concomitant]
     Active Substance: LORAZEPAM
     Indication: PARTIAL SEIZURES

REACTIONS (1)
  - Drug interaction [Unknown]
